FAERS Safety Report 15704381 (Version 1)
Quarter: 2018Q4

REPORT INFORMATION
  Report Type: Spontaneous
  Country: RU (occurrence: RU)
  Receive Date: 20181210
  Receipt Date: 20181210
  Transmission Date: 20190205
  Serious: Yes (Other)
  Sender: FDA-Public Use
  Company Number: PHHY2018RU177437

PATIENT
  Age: 80 Year
  Sex: Female
  Weight: 66 kg

DRUGS (1)
  1. FORADIL [Suspect]
     Active Substance: FORMOTEROL FUMARATE
     Indication: ASTHMA
     Dosage: 24/800 UG, QD
     Route: 055
     Dates: start: 20181002, end: 20181005

REACTIONS (3)
  - Cough [Recovering/Resolving]
  - Throat irritation [Recovering/Resolving]
  - Dyspnoea [Recovering/Resolving]

NARRATIVE: CASE EVENT DATE: 20181002
